FAERS Safety Report 5585633-1 (Version None)
Quarter: 2008Q1

REPORT INFORMATION
  Report Type: 
  Country: None (occurrence: None)
  Receive Date: 20080109
  Receipt Date: 20080107
  Transmission Date: 20080703
  Serious: Yes (Life-Threatening, Other)
  Sender: FDA-Public Use
  Company Number: US-AVENTIS-200714178EU

PATIENT
  Age: 67 Year
  Sex: Female

DRUGS (58)
  1. ENOXAPARIN [Suspect]
     Route: 058
     Dates: start: 20070823, end: 20070823
  2. SIMVASTATIN [Concomitant]
     Route: 048
     Dates: start: 20030701
  3. SIMVASTATIN [Concomitant]
     Dates: start: 20070823, end: 20070823
  4. LORATADINE [Concomitant]
     Route: 048
     Dates: start: 20041001
  5. MIDAZOLAM HCL [Concomitant]
     Dates: start: 20070823, end: 20070823
  6. FENTANYL [Concomitant]
     Dates: start: 20070823, end: 20070823
  7. CEFAZOLIN [Concomitant]
     Dates: start: 20070823, end: 20070823
  8. EPHEDRINE [Concomitant]
     Dates: start: 20070823, end: 20070823
  9. MARCAINE                           /00330101/ [Concomitant]
     Dates: start: 20070823, end: 20070823
  10. ALBUTEROL [Concomitant]
     Indication: ASTHMA
     Dates: start: 20070824, end: 20070831
  11. DECADRON [Concomitant]
     Dates: start: 20070827, end: 20070827
  12. DECADRON [Concomitant]
     Dates: start: 20070827, end: 20070828
  13. COLACE [Concomitant]
     Indication: CONSTIPATION
     Dates: start: 20070823, end: 20070823
  14. LOVENOX [Concomitant]
     Dates: start: 20070824, end: 20070825
  15. LOVENOX [Concomitant]
     Dates: start: 20070825, end: 20070828
  16. LOVENOX [Concomitant]
     Dates: start: 20070829, end: 20070831
  17. EPINEPHRINE [Concomitant]
     Indication: ASTHMA
     Dates: start: 20070827, end: 20070827
  18. PEPCID                             /00706001/ [Concomitant]
     Dates: start: 20070823, end: 20070824
  19. FERROUS SULFATE TAB [Concomitant]
     Indication: IRON DEFICIENCY
     Dates: start: 20070831, end: 20070831
  20. HUMULIN 70/30 [Concomitant]
     Dates: start: 20070824, end: 20070824
  21. HUMULIN 70/30 [Concomitant]
     Dates: start: 20070825, end: 20070825
  22. HUMULIN 70/30 [Concomitant]
     Dates: start: 20070826, end: 20070826
  23. HUMULIN 70/30 [Concomitant]
     Dates: start: 20070827, end: 20070827
  24. HUMULIN 70/30 [Concomitant]
     Dates: start: 20070828, end: 20070828
  25. HUMULIN 70/30 [Concomitant]
     Dates: start: 20070828, end: 20070828
  26. HUMULIN 70/30 [Concomitant]
     Dates: start: 20070829, end: 20070829
  27. HUMULIN 70/30 [Concomitant]
     Dates: start: 20070830, end: 20070830
  28. HUMULIN 70/30 [Concomitant]
     Dates: start: 20070831, end: 20070831
  29. IPRATROPIUM BROMIDE [Concomitant]
     Indication: ASTHMA
     Dates: start: 20070824, end: 20070831
  30. LEVOFLOXACIN [Concomitant]
     Dates: start: 20070825, end: 20070827
  31. LIDOCAINE [Concomitant]
     Indication: PAIN
     Dates: start: 20070825, end: 20070825
  32. PANTOPRAZOLE SODIUM [Concomitant]
     Dates: start: 20070824, end: 20070831
  33. POTASSIUM CHLORIDE [Concomitant]
     Dates: start: 20070825, end: 20070826
  34. POTASSIUM CHLORIDE [Concomitant]
     Dates: start: 20070826, end: 20070827
  35. POTASSIUM CHLORIDE [Concomitant]
     Dates: start: 20070826, end: 20070827
  36. POTASSIUM CHLORIDE [Concomitant]
     Dates: start: 20070830, end: 20070830
  37. SODIUM BICARBONATE [Concomitant]
     Dates: start: 20070824, end: 20070824
  38. WARFARIN SODIUM [Concomitant]
     Dates: start: 20070828, end: 20070829
  39. WARFARIN SODIUM [Concomitant]
     Dates: start: 20070830, end: 20070830
  40. WARFARIN SODIUM [Concomitant]
     Dates: start: 20070831, end: 20070831
  41. ACETAMINOPHEN [Concomitant]
     Dates: start: 20070825, end: 20070825
  42. ALBUTEROL [Concomitant]
     Dates: start: 20070827, end: 20070827
  43. ALBUTEROL [Concomitant]
     Dates: start: 20070830, end: 20070830
  44. GUAIFENESIN [Concomitant]
     Indication: COUGH
     Dates: start: 20070828, end: 20070828
  45. NORCO [Concomitant]
     Indication: PAIN
     Dates: start: 20070830, end: 20070831
  46. IPRATROPIUM BROMIDE [Concomitant]
     Dates: start: 20070827, end: 20070827
  47. IPRATROPIUM BROMIDE [Concomitant]
     Dates: start: 20070830, end: 20070830
  48. LORAZEPAM [Concomitant]
     Dates: start: 20070826, end: 20070827
  49. LORAZEPAM [Concomitant]
     Dates: start: 20070827, end: 20070827
  50. MORPHINE [Concomitant]
     Indication: PAIN
     Dates: start: 20070826, end: 20070826
  51. MORPHINE [Concomitant]
     Dates: start: 20070827, end: 20070827
  52. MORPHINE [Concomitant]
     Dates: start: 20070828, end: 20070828
  53. MORPHINE [Concomitant]
     Dates: start: 20070829, end: 20070829
  54. MORPHINE [Concomitant]
     Dates: start: 20070830, end: 20070830
  55. PROPOFOL [Concomitant]
     Indication: SEDATION
     Dates: start: 20070824, end: 20070824
  56. NOREPINEPHRINE [Concomitant]
     Indication: HYPOTENSION
     Dates: start: 20070824, end: 20070824
  57. PHENYLEPHRINE [Concomitant]
     Indication: HYPOTENSION
     Dates: start: 20070824, end: 20070824
  58. SODIUM CHLORIDE INJ [Concomitant]
     Dates: start: 20070824, end: 20070831

REACTIONS (3)
  - CARDIAC ARREST [None]
  - GASTRIC HAEMORRHAGE [None]
  - PULMONARY EMBOLISM [None]
